FAERS Safety Report 20670202 (Version 1)
Quarter: 2022Q2

REPORT INFORMATION
  Report Type: Spontaneous
  Country: CA (occurrence: CA)
  Receive Date: 20220404
  Receipt Date: 20220404
  Transmission Date: 20220721
  Serious: Yes (Death)
  Sender: FDA-Public Use
  Company Number: CA-BAYER-2022A046467

PATIENT
  Age: 78 Year
  Sex: Male

DRUGS (27)
  1. RIVAROXABAN [Suspect]
     Active Substance: RIVAROXABAN
     Indication: Product used for unknown indication
     Dosage: 20 MG, QD
     Route: 048
  2. DULERA [Concomitant]
     Active Substance: FORMOTEROL FUMARATE DIHYDRATE\MOMETASONE FUROATE
  3. SPIRIVA [Concomitant]
     Active Substance: TIOTROPIUM BROMIDE MONOHYDRATE
     Route: 065
  4. FLOMAX [Concomitant]
     Active Substance: TAMSULOSIN HYDROCHLORIDE
  5. PLAVIX [Concomitant]
     Active Substance: CLOPIDOGREL BISULFATE
  6. FOSAMAX [Concomitant]
     Active Substance: ALENDRONATE SODIUM
  7. SOLUCAL D [Concomitant]
  8. ALVESCO [Concomitant]
     Active Substance: CICLESONIDE
  9. TYLENOL [Concomitant]
     Active Substance: ACETAMINOPHEN
  10. CARDIZEM CD [Concomitant]
     Active Substance: DILTIAZEM HYDROCHLORIDE
  11. ATROPINE SULFATE [Concomitant]
     Active Substance: ATROPINE SULFATE
  12. SEREVENT DISKUS [Concomitant]
     Active Substance: SALMETEROL XINAFOATE
     Dosage: 50 MICROGRAM PER GRAM
  13. FLOVENT [Concomitant]
     Active Substance: FLUTICASONE PROPIONATE
  14. PEGALAX [Concomitant]
     Route: 048
  15. FENTANYL [Concomitant]
     Active Substance: FENTANYL
  16. DEXTROSE\SODIUM CHLORIDE [Concomitant]
     Active Substance: DEXTROSE\SODIUM CHLORIDE
     Route: 042
  17. NARCAN [Concomitant]
     Active Substance: NALOXONE HYDROCHLORIDE
     Route: 042
  18. ATIVAN [Concomitant]
     Active Substance: LORAZEPAM
  19. CHADOX1 NCOV-19 [Concomitant]
     Route: 065
  20. SODIUM NITROPRUSSIDE [Concomitant]
     Active Substance: SODIUM NITROPRUSSIDE
     Route: 042
  21. HEPARIN [Concomitant]
     Active Substance: HEPARIN SODIUM
     Route: 042
  22. LASIX [Concomitant]
     Active Substance: FUROSEMIDE
  23. PANTOPRAZOLE SODIUM [Concomitant]
     Active Substance: PANTOPRAZOLE SODIUM
  24. VITAMIN D NOS [Concomitant]
     Active Substance: VITAMIN D NOS
  25. ALBUTEROL [Concomitant]
     Active Substance: ALBUTEROL
  26. COLACE [Concomitant]
     Active Substance: DOCUSATE SODIUM
  27. CORDARONE [Concomitant]
     Active Substance: AMIODARONE HYDROCHLORIDE

REACTIONS (2)
  - Pericardial haemorrhage [Fatal]
  - Aortic dissection [Fatal]
